FAERS Safety Report 6504812-X (Version None)
Quarter: 2009Q4

REPORT INFORMATION
  Report Type: 
  Country: None (occurrence: None)
  Receive Date: 20091216
  Receipt Date: 20091117
  Transmission Date: 20100525
  Serious: Yes (Death, Life-Threatening)
  Sender: FDA-Public Use
  Company Number: AE-2009-299

PATIENT
  Age: 95 Year
  Sex: Female

DRUGS (2)
  1. METOCLOPRAMIDE [Suspect]
     Dosage: ORAL
     Route: 048
  2. TRAMADOL HCL [Suspect]
     Dosage: 50MG IV
     Route: 042

REACTIONS (4)
  - OBSTRUCTIVE AIRWAYS DISORDER [None]
  - RESPIRATORY ARREST [None]
  - RESPIRATORY DISORDER [None]
  - SWELLING [None]
